FAERS Safety Report 10258391 (Version 1)
Quarter: 2014Q2

REPORT INFORMATION
  Report Type: Spontaneous
  Country: US (occurrence: US)
  Receive Date: 20140625
  Receipt Date: 20140625
  Transmission Date: 20141212
  Serious: No
  Sender: FDA-Public Use
  Company Number: US-HORIZON-VIM-0001-2014

PATIENT
  Age: 65 Year
  Sex: Female

DRUGS (2)
  1. VIMOVO [Suspect]
     Indication: OSTEOARTHRITIS
     Dosage: ONE TABLET TWICE A DAY
     Route: 048
     Dates: start: 20140110, end: 20140110
  2. LISINOPRIL [Concomitant]

REACTIONS (2)
  - Drug ineffective [Recovered/Resolved]
  - Incorrect dose administered [Recovered/Resolved]
